FAERS Safety Report 20192353 (Version 2)
Quarter: 2021Q4

REPORT INFORMATION
  Report Type: Spontaneous
  Country: JP (occurrence: JP)
  Receive Date: 20211216
  Receipt Date: 20211229
  Transmission Date: 20220303
  Serious: Yes (Death, Hospitalization)
  Sender: FDA-Public Use
  Company Number: JP-TEVA-2021-JP-1986892

PATIENT
  Age: 69 Year
  Sex: Male

DRUGS (8)
  1. FUROSEMIDE [Suspect]
     Active Substance: FUROSEMIDE
     Indication: Cardiac failure
     Route: 065
  2. PREDNISOLONE [Suspect]
     Active Substance: PREDNISOLONE
     Indication: Myopathy
     Dosage: 50 MILLIGRAM DAILY;
     Route: 048
  3. ROSUVASTATIN [Suspect]
     Active Substance: ROSUVASTATIN
     Indication: Dyslipidaemia
     Route: 065
  4. METHYLPREDNISOLONE [Suspect]
     Active Substance: METHYLPREDNISOLONE
     Indication: Myopathy
     Dosage: 60 MILLIGRAM DAILY; FOR A WEEK
     Route: 065
  5. METHYLPREDNISOLONE [Suspect]
     Active Substance: METHYLPREDNISOLONE
     Indication: Interstitial lung disease
     Dosage: 1G FOR 3 DAYS
     Route: 042
  6. TACROLIMUS [Suspect]
     Active Substance: TACROLIMUS
     Indication: Myopathy
     Dosage: 3 MILLIGRAM DAILY;
     Route: 065
  7. DOBUTAMINE [Suspect]
     Active Substance: DOBUTAMINE HYDROCHLORIDE
     Indication: Cardiac failure
     Route: 065
  8. IMMUNE GLOBULIN NOS [Suspect]
     Active Substance: IMMUNE GLOBULIN NOS
     Indication: Interstitial lung disease
     Dosage: 0.4G/KG/DAY FOR 5 DAYS
     Route: 042

REACTIONS (8)
  - Myopathy [Fatal]
  - Cardiac failure [Fatal]
  - Respiratory failure [Fatal]
  - Drug ineffective [Fatal]
  - Pericardial effusion [Unknown]
  - Pleural effusion [Unknown]
  - Pericarditis [Unknown]
  - Endocarditis [Unknown]
